FAERS Safety Report 4877595-7 (Version None)
Quarter: 2006Q1

REPORT INFORMATION
  Report Type: 
  Country: None (occurrence: None)
  Receive Date: 20060109
  Receipt Date: 20051223
  Transmission Date: 20060701
  Serious: Yes (Death)
  Sender: FDA-Public Use
  Company Number: 200512IM000852

PATIENT
  Age: 48 Year
  Sex: Male
  Weight: 74.8435 kg

DRUGS (1)
  1. INFERGEN [Suspect]
     Dosage: 0.5 ML, INTRAMUSCULAR
     Route: 030
     Dates: start: 20050601

REACTIONS (6)
  - ANXIETY [None]
  - COMPLETED SUICIDE [None]
  - COUGH [None]
  - FATIGUE [None]
  - INSOMNIA [None]
  - THERAPY NON-RESPONDER [None]
